FAERS Safety Report 13984470 (Version 2)
Quarter: 2017Q4

REPORT INFORMATION
  Report Type: Spontaneous
  Country: DK (occurrence: DK)
  Receive Date: 20170918
  Receipt Date: 20171004
  Transmission Date: 20180321
  Serious: Yes (Death, Hospitalization)
  Sender: FDA-Public Use
  Company Number: DK-SA-2017SA170198

PATIENT
  Age: 61 Year
  Sex: Male

DRUGS (7)
  1. REMSIMA [Suspect]
     Active Substance: INFLIXIMAB
     Indication: RHEUMATOID ARTHRITIS
     Dosage: DOSAGE: 200 MG EVERY 8TH WEEK,?STRENGTH: 200 MG IN 250 ML NACL
     Route: 042
     Dates: start: 201707
  2. CLARITHROMYCIN. [Concomitant]
     Active Substance: CLARITHROMYCIN
  3. ARAVA [Suspect]
     Active Substance: LEFLUNOMIDE
     Indication: RHEUMATOID ARTHRITIS
     Dosage: STYRKE: 20 MG.
     Route: 048
     Dates: start: 20170313, end: 20170815
  4. PREDNISOLON [Concomitant]
     Active Substance: PREDNISOLONE
  5. SALAZOPYRIN [Suspect]
     Active Substance: SULFASALAZINE
     Indication: RHEUMATOID ARTHRITIS
     Dosage: DOSIS: 500 MG X 1
     Route: 065
  6. IBUPROFEN. [Concomitant]
     Active Substance: IBUPROFEN
  7. PARACETAMOL [Concomitant]
     Active Substance: ACETAMINOPHEN

REACTIONS (7)
  - Acute respiratory failure [Fatal]
  - Pneumothorax [Fatal]
  - Pleural effusion [Fatal]
  - Cardiac failure [Fatal]
  - Pneumonitis [Fatal]
  - Dyspnoea [Fatal]
  - Interstitial lung disease [Fatal]

NARRATIVE: CASE EVENT DATE: 20170814
